FAERS Safety Report 16342041 (Version 2)
Quarter: 2019Q3

REPORT INFORMATION
  Report Type: Spontaneous
  Country: US (occurrence: US)
  Receive Date: 20190522
  Receipt Date: 20190827
  Transmission Date: 20191004
  Serious: Yes (Other)
  Sender: FDA-Public Use
  Company Number: US-AUROBINDO-AUR-APL-2019-026717

PATIENT

DRUGS (1)
  1. ATENOLOL. [Suspect]
     Active Substance: ATENOLOL
     Indication: INFANTILE HAEMANGIOMA
     Dosage: 0.5 MILLIGRAM/KILOGRAM, ONCE A DAY, FOR FEW DAYS
     Route: 065

REACTIONS (3)
  - Vomiting [Unknown]
  - Toxicity to various agents [Unknown]
  - Sleep disorder [Unknown]
